FAERS Safety Report 16655311 (Version 1)
Quarter: 2019Q3

REPORT INFORMATION
  Report Type: Spontaneous
  Country: FR (occurrence: FR)
  Receive Date: 20190801
  Receipt Date: 20190801
  Transmission Date: 20191004
  Serious: Yes (Hospitalization)
  Sender: FDA-Public Use
  Company Number: FR-TEVA-2019-FR-1086312

PATIENT
  Age: 60 Year
  Sex: Female
  Weight: 52 kg

DRUGS (1)
  1. RALOXIFENE (CHLORHYDRATE DE) [Suspect]
     Active Substance: RALOXIFENE HYDROCHLORIDE
     Indication: BREAST NEOPLASM
     Dosage: 1 DOSAGE FORMS DAILY;
     Route: 048

REACTIONS (1)
  - Ventricular hypokinesia [Not Recovered/Not Resolved]

NARRATIVE: CASE EVENT DATE: 201809
